FAERS Safety Report 25688877 (Version 1)
Quarter: 2025Q3

REPORT INFORMATION
  Report Type: Spontaneous
  Country: US (occurrence: US)
  Receive Date: 20250818
  Receipt Date: 20250818
  Transmission Date: 20251021
  Serious: Yes (Hospitalization, Other)
  Sender: AUROBINDO
  Company Number: US-MLMSERVICE-20250728-PI593433-00108-1

PATIENT
  Age: 35 Year

DRUGS (11)
  1. CLOZAPINE [Suspect]
     Active Substance: CLOZAPINE
     Indication: Schizophrenia
     Dosage: 900 MILLIGRAM, ONCE A DAY (F
     Route: 065
  2. CLOZAPINE [Suspect]
     Active Substance: CLOZAPINE
     Indication: Psychotic symptom
     Dosage: 800 MILLIGRAM, ONCE A DAY (
     Route: 065
  3. ARIPIPRAZOLE [Concomitant]
     Active Substance: ARIPIPRAZOLE
     Indication: Hallucination, auditory
     Dosage: 5 MILLIGRAM, ONCE A DAY (17 DAYS BEFORE OF HOSPITALIZATION)
     Route: 065
  4. ARIPIPRAZOLE [Concomitant]
     Active Substance: ARIPIPRAZOLE
     Indication: Delusion
     Dosage: 10 MILLIGRAM, ONCE A DAY (6, 15, 19, 20 DAY OF HOSPITALIZATION)
     Route: 065
  5. ARIPIPRAZOLE [Concomitant]
     Active Substance: ARIPIPRAZOLE
     Dosage: 15 MILLIGRAM, ONCE A DAY (30 DAY OF HOSPITALIZATION, 1, 2, 5, 15 DAYS AFTER HOSPITALIZATION)
     Route: 065
  6. ARIPIPRAZOLE [Concomitant]
     Active Substance: ARIPIPRAZOLE
     Dosage: 20 MILLIGRAM, ONCE A DAY (19, 29, 47, 93, 164, 180 DAYS AFTER HOSPITALIZATION, 1.5 YEARS AFTER HOSPI
     Route: 065
  7. ISONIAZID [Concomitant]
     Active Substance: ISONIAZID
     Indication: Pulmonary tuberculosis
     Dosage: 300 MILLIGRAM, ONCE A DAY (15, 19, 20, 30, DAY OF HOSPITALIZATION, 1, 2, 5, 15, 19, 29, 47, 93 DAYS
     Route: 065
  8. PYRAZINAMIDE [Concomitant]
     Active Substance: PYRAZINAMIDE
     Indication: Pulmonary tuberculosis
     Dosage: 1500 MILLIGRAM, ONCE A DAY (15, 19, 20, 30, DAY OF HOSPITALIZATION)
     Route: 065
  9. PYRAZINAMIDE [Concomitant]
     Active Substance: PYRAZINAMIDE
     Dosage: 2000 MILLIGRAM, ONCE A DAY (DOSE INCREASED IN ACCORDANCE WITH WEIGHT-BASED DOSING RECOMMENDATIONS. 1
     Route: 065
  10. ETHAMBUTOL [Concomitant]
     Active Substance: ETHAMBUTOL HYDROCHLORIDE
     Indication: Pulmonary tuberculosis
     Dosage: 1200 MILLIGRAM, ONCE A DAY (15, 19, 20, 30, DAY OF HOSPITALIZATIO)
     Route: 065
  11. ETHAMBUTOL [Concomitant]
     Active Substance: ETHAMBUTOL HYDROCHLORIDE
     Dosage: 1600 MILLIGRAM, ONCE A DAY (DOSE INCREASED IN ACCORDANCE WITH WEIGHT-BASED DOSING RECOMMENDATIONS. 1
     Route: 065

REACTIONS (7)
  - Pulmonary tuberculosis [Recovering/Resolving]
  - Psychiatric symptom [Unknown]
  - Condition aggravated [Unknown]
  - Antipsychotic drug level decreased [Recovering/Resolving]
  - Drug interaction [Recovering/Resolving]
  - Salivary hypersecretion [Unknown]
  - Weight increased [Unknown]
